FAERS Safety Report 21207512 (Version 1)
Quarter: 2022Q3

REPORT INFORMATION
  Report Type: Other
  Country: None (occurrence: US)
  Receive Date: 20220812
  Receipt Date: 20220812
  Transmission Date: 20221027
  Serious: Yes (Hospitalization, Other)
  Sender: FDA-Public Use
  Company Number: US-Appco Pharma LLC-2131823

PATIENT
  Age: 38 Year
  Sex: Male

DRUGS (4)
  1. CLINDAMYCIN PALMITATE HYDROCHLORIDE [Suspect]
     Active Substance: CLINDAMYCIN PALMITATE HYDROCHLORIDE
     Indication: Pneumocystis jirovecii pneumonia
     Route: 065
  2. PRIMAQUINE PHOSPHATE [Suspect]
     Active Substance: PRIMAQUINE PHOSPHATE
     Route: 065
  3. GANCICLOVIR [Suspect]
     Active Substance: GANCICLOVIR
     Route: 065
  4. MICAFUNGIN. [Suspect]
     Active Substance: MICAFUNGIN SODIUM
     Route: 065

REACTIONS (1)
  - Drug ineffective [Unknown]
